FAERS Safety Report 13439855 (Version 1)
Quarter: 2017Q2

REPORT INFORMATION
  Report Type: Report from Study
  Country: BR (occurrence: BR)
  Receive Date: 20170413
  Receipt Date: 20170413
  Transmission Date: 20170830
  Serious: Yes (Death, Hospitalization)
  Sender: FDA-Public Use
  Company Number: PHHY2017BR055114

PATIENT
  Sex: Female
  Weight: 80 kg

DRUGS (3)
  1. FORASEQ [Suspect]
     Active Substance: BUDESONIDE\FORMOTEROL FUMARATE
     Indication: BRONCHITIS
     Dosage: 1 DF (BUDESONIDE 12 UG, FORMOTEROL FUMARATE 200 UG) PRN
     Route: 065
  2. FORASEQ [Suspect]
     Active Substance: BUDESONIDE\FORMOTEROL FUMARATE
     Indication: DYSPNOEA
  3. FORASEQ [Suspect]
     Active Substance: BUDESONIDE\FORMOTEROL FUMARATE
     Indication: ASTHMA
     Dosage: 1 DF (BUDESONIDE 12 UG, FORMOTEROL FUMARATE 200 UG) QD
     Route: 065

REACTIONS (3)
  - Dyspnoea [Unknown]
  - Pneumonia [Fatal]
  - Aortic aneurysm [Unknown]
